FAERS Safety Report 16911846 (Version 1)
Quarter: 2019Q4

REPORT INFORMATION
  Report Type: Spontaneous
  Country: US (occurrence: US)
  Receive Date: 20191014
  Receipt Date: 20191014
  Transmission Date: 20200122
  Serious: No
  Sender: FDA-Public Use
  Company Number: US-SA-2019SA278810

PATIENT
  Age: 72 Year
  Sex: Female

DRUGS (2)
  1. DUPIXENT [Suspect]
     Active Substance: DUPILUMAB
     Dosage: 300 MG, QOW
     Route: 058
  2. DUPIXENT [Suspect]
     Active Substance: DUPILUMAB
     Dosage: 600 MG, 1X, SOLUTION FOR INJECTION
     Route: 058
     Dates: start: 201909, end: 201909

REACTIONS (3)
  - Joint swelling [Recovered/Resolved]
  - Nasal pruritus [Unknown]
  - Sneezing [Unknown]

NARRATIVE: CASE EVENT DATE: 2019
